FAERS Safety Report 23836263 (Version 1)
Quarter: 2024Q2

REPORT INFORMATION
  Report Type: Spontaneous
  Country: IT (occurrence: IT)
  Receive Date: 20240509
  Receipt Date: 20240509
  Transmission Date: 20240716
  Serious: Yes (Other)
  Sender: FDA-Public Use
  Company Number: IT-PFIZER INC-PV202400059289

PATIENT
  Age: 66 Year
  Sex: Female

DRUGS (3)
  1. METHYLPREDNISOLONE [Suspect]
     Active Substance: METHYLPREDNISOLONE
     Indication: Eczema
     Dosage: UNK
     Route: 048
  2. MOMETASONE [Suspect]
     Active Substance: MOMETASONE
     Indication: Eczema
     Dosage: UNK
     Route: 061
  3. PREDNISONE [Suspect]
     Active Substance: PREDNISONE
     Indication: Eczema
     Dosage: HIGH-DOSE
     Route: 048

REACTIONS (2)
  - Drug ineffective [Recovered/Resolved]
  - Condition aggravated [Recovered/Resolved]
